FAERS Safety Report 4996244-0 (Version None)
Quarter: 2006Q2

REPORT INFORMATION
  Report Type: 
  Country: None (occurrence: None)
  Receive Date: 20060505
  Receipt Date: 20060425
  Transmission Date: 20061013
  Serious: Yes (Hospitalization)
  Sender: FDA-Public Use
  Company Number: 2006BI005416

PATIENT
  Age: 48 Year
  Sex: Female
  Weight: 85 kg

DRUGS (3)
  1. AVONEX [Suspect]
     Indication: MULTIPLE SCLEROSIS
     Dosage: 30 UG;QW;IM
     Route: 030
     Dates: start: 19961003
  2. AVONEX [Suspect]
     Indication: MULTIPLE SCLEROSIS
     Dosage: 30 UG;QW;IM
     Route: 030
  3. VOTUM [Concomitant]

REACTIONS (5)
  - ERYSIPELAS [None]
  - HAEMORRHAGE SUBCUTANEOUS [None]
  - LIMB INJURY [None]
  - OEDEMA PERIPHERAL [None]
  - SKIN NECROSIS [None]
